FAERS Safety Report 11935636 (Version 1)
Quarter: 2016Q1

REPORT INFORMATION
  Report Type: Spontaneous
  Country: US (occurrence: US)
  Receive Date: 20160121
  Receipt Date: 20160121
  Transmission Date: 20160526
  Serious: Yes (Hospitalization, Other)
  Sender: FDA-Public Use
  Company Number: US-ABBVIE-16P-163-1542097-00

PATIENT
  Age: 26 Year
  Sex: Female
  Weight: 59.02 kg

DRUGS (1)
  1. HUMIRA [Suspect]
     Active Substance: ADALIMUMAB
     Indication: CROHN^S DISEASE
     Route: 058
     Dates: end: 20151226

REACTIONS (9)
  - Exposure during pregnancy [Unknown]
  - Nausea [Unknown]
  - Alopecia [Not Recovered/Not Resolved]
  - Normal newborn [Not Recovered/Not Resolved]
  - Ileostomy [Unknown]
  - Intestinal resection [Unknown]
  - High risk pregnancy [Recovered/Resolved]
  - Anaemia [Unknown]
  - Pain [Unknown]

NARRATIVE: CASE EVENT DATE: 2015
